FAERS Safety Report 5023900-0 (Version None)
Quarter: 2006Q2

REPORT INFORMATION
  Report Type: 
  Country: None (occurrence: None)
  Receive Date: 20060426
  Receipt Date: 20060222
  Transmission Date: 20061013
  Serious: Yes (Other)
  Sender: FDA-Public Use
  Company Number: 2006026760

PATIENT
  Age: 74 Year
  Sex: Female
  Weight: 68.0396 kg

DRUGS (1)
  1. LYRICA [Suspect]
     Indication: PAIN MANAGEMENT
     Dosage: 150 MG (75 MG,2 IN 1 D), ORAL
     Route: 048
     Dates: start: 20060221

REACTIONS (1)
  - DIPLOPIA [None]
